FAERS Safety Report 6933913-7 (Version None)
Quarter: 2010Q3

REPORT INFORMATION
  Report Type: 
  Country: None (occurrence: None)
  Receive Date: 20100820
  Receipt Date: 20100812
  Transmission Date: 20110219
  Serious: Yes (Hospitalization)
  Sender: FDA-Public Use
  Company Number: JP-ROCHE-719346

PATIENT
  Sex: Female
  Weight: 53 kg

DRUGS (17)
  1. AVASTIN [Suspect]
     Indication: LUNG ADENOCARCINOMA
     Route: 041
     Dates: start: 20100331, end: 20100331
  2. AVASTIN [Suspect]
     Route: 041
     Dates: start: 20100421, end: 20100421
  3. AVASTIN [Suspect]
     Route: 041
     Dates: start: 20100518, end: 20100518
  4. ALIMTA [Suspect]
     Indication: LUNG ADENOCARCINOMA
     Route: 041
     Dates: start: 20100331, end: 20100331
  5. ALIMTA [Suspect]
     Route: 041
     Dates: start: 20100421, end: 20100421
  6. ALIMTA [Suspect]
     Route: 041
     Dates: start: 20100518, end: 20100518
  7. GRANISETRON HCL [Concomitant]
     Dosage: DRUG: GRANISETRON HYDROCHLORIDE
     Route: 041
     Dates: start: 20100331, end: 20100331
  8. GRANISETRON HCL [Concomitant]
     Route: 041
     Dates: start: 20100421, end: 20100421
  9. GRANISETRON HCL [Concomitant]
     Route: 041
     Dates: start: 20100518, end: 20100518
  10. DEXART [Concomitant]
     Route: 041
     Dates: start: 20100331, end: 20100331
  11. DEXART [Concomitant]
     Route: 041
     Dates: start: 20100421, end: 20100421
  12. DEXART [Concomitant]
     Route: 041
     Dates: start: 20100518, end: 20100518
  13. PANVITAN [Concomitant]
     Dosage: DRUG:PANVITAN(RETINOL_CALCIFEROL COMBINED DRUG). DOSE FORM: POWDERED MEDICINE
     Route: 048
     Dates: start: 20100323
  14. CLEANAL [Concomitant]
     Route: 048
  15. BEZATOL SR [Concomitant]
     Route: 048
  16. URIEF [Concomitant]
     Route: 048
  17. SPIRIVA [Concomitant]
     Dosage: DRUG: SPIRIVA(TIOTROPIUM BROMIDE HYDRATE)
     Route: 055

REACTIONS (1)
  - INTERSTITIAL LUNG DISEASE [None]
